FAERS Safety Report 14659280 (Version 2)
Quarter: 2019Q1

REPORT INFORMATION
  Report Type: Report from Study
  Country: None (occurrence: US)
  Receive Date: 20180320
  Receipt Date: 20190104
  Transmission Date: 20190417
  Serious: Yes (Hospitalization, Other)
  Sender: FDA-Public Use
  Company Number: US-ABBVIE-18K-163-2287867-00

PATIENT
  Age: 48 Year
  Sex: Male

DRUGS (1)
  1. HUMIRA [Suspect]
     Active Substance: ADALIMUMAB
     Indication: CROHN^S DISEASE
     Route: 058
     Dates: start: 201704, end: 20171219

REACTIONS (4)
  - Small intestinal obstruction [Unknown]
  - Abdominal adhesions [Recovering/Resolving]
  - Blood iron decreased [Recovering/Resolving]
  - Adhesion [Unknown]

NARRATIVE: CASE EVENT DATE: 201711
